FAERS Safety Report 22311038 (Version 7)
Quarter: 2023Q4

REPORT INFORMATION
  Report Type: Spontaneous
  Country: US (occurrence: US)
  Receive Date: 20230511
  Receipt Date: 20231025
  Transmission Date: 20240110
  Serious: No
  Sender: FDA-Public Use
  Company Number: US-PFIZER INC-PV202300082554

PATIENT
  Age: 59 Year
  Sex: Female

DRUGS (1)
  1. XELJANZ XR [Suspect]
     Active Substance: TOFACITINIB CITRATE
     Dosage: 11 MG

REACTIONS (7)
  - Pain [Unknown]
  - Malaise [Not Recovered/Not Resolved]
  - Inflammation [Recovering/Resolving]
  - Dysphonia [Unknown]
  - Confusional state [Unknown]
  - Brain fog [Unknown]
  - Abdominal discomfort [Unknown]
